FAERS Safety Report 7584058-7 (Version None)
Quarter: 2011Q2

REPORT INFORMATION
  Report Type: 
  Country: None (occurrence: None)
  Receive Date: 20110531
  Receipt Date: 20100922
  Transmission Date: 20111010
  Serious: Yes (Other)
  Sender: FDA-Public Use
  Company Number: 311889

PATIENT
  Age: 69 Year
  Sex: Female

DRUGS (2)
  1. VAGIFEM [Suspect]
     Indication: CYSTITIS
     Dosage: 25 UG, BIW, VAGINAL ; 25 UG, BIW
     Route: 067
     Dates: start: 20050101, end: 20100722
  2. VAGIFEM [Suspect]
     Indication: CYSTITIS
     Dosage: 25 UG, BIW, VAGINAL ; 25 UG, BIW
     Route: 067
     Dates: start: 20100101, end: 20100101

REACTIONS (1)
  - BREAST CANCER [None]
